FAERS Safety Report 25163537 (Version 2)
Quarter: 2025Q2

REPORT INFORMATION
  Report Type: Report from Study
  Country: US (occurrence: US)
  Receive Date: 20250405
  Receipt Date: 20250429
  Transmission Date: 20250717
  Serious: Yes (Other)
  Sender: ABBVIE
  Company Number: US-ABBVIE-6206931

PATIENT
  Age: 61 Year
  Sex: Male
  Weight: 95 kg

DRUGS (1)
  1. SKYRIZI [Suspect]
     Active Substance: RISANKIZUMAB-RZAA
     Indication: Psoriasis
     Dosage: UNKNOWN
     Route: 058
     Dates: start: 202409, end: 202502

REACTIONS (5)
  - Stress fracture [Recovered/Resolved]
  - Psoriasis [Recovering/Resolving]
  - Rash pruritic [Recovered/Resolved]
  - Stress fracture [Recovered/Resolved]
  - Rash pruritic [Not Recovered/Not Resolved]

NARRATIVE: CASE EVENT DATE: 20250101
